FAERS Safety Report 6955298-2 (Version None)
Quarter: 2010Q3

REPORT INFORMATION
  Report Type: 
  Country: None (occurrence: None)
  Receive Date: 20100830
  Receipt Date: 20100817
  Transmission Date: 20110219
  Serious: Yes (Hospitalization)
  Sender: FDA-Public Use
  Company Number: PHHY2010DE55663

PATIENT
  Age: 72 Year
  Sex: Female

DRUGS (1)
  1. MYFORTIC [Suspect]
     Indication: RENAL TRANSPLANT
     Dosage: 180 MG, BID

REACTIONS (2)
  - CEREBROVASCULAR ACCIDENT [None]
  - DYSPHAGIA [None]
